FAERS Safety Report 9756161 (Version 1)
Quarter: 2013Q4

REPORT INFORMATION
  Report Type: Spontaneous
  Country: FR (occurrence: FR)
  Receive Date: 20131213
  Receipt Date: 20131213
  Transmission Date: 20140711
  Serious: Yes (Life-Threatening)
  Sender: FDA-Public Use
  Company Number: FR-BRISTOL-MYERS SQUIBB COMPANY-19884725

PATIENT
  Age: 66 Year
  Sex: Female

DRUGS (2)
  1. TAXOL INJ [Suspect]
     Indication: OVARIAN CANCER
     Route: 042
     Dates: start: 20131108
  2. CARBOPLATINE [Suspect]
     Indication: OVARIAN CANCER
     Route: 042
     Dates: start: 20131108

REACTIONS (1)
  - Febrile bone marrow aplasia [Unknown]
